FAERS Safety Report 12313260 (Version 1)
Quarter: 2016Q2

REPORT INFORMATION
  Report Type: Spontaneous
  Country: US (occurrence: US)
  Receive Date: 20160428
  Receipt Date: 20160428
  Transmission Date: 20160815
  Serious: No
  Sender: FDA-Public Use
  Company Number: US-PFIZER INC-2016202380

PATIENT
  Sex: Female
  Weight: 54 kg

DRUGS (3)
  1. ADVIL [Suspect]
     Active Substance: IBUPROFEN
     Indication: BACK PAIN
     Dosage: 200 MG, 2X/DAY
     Dates: start: 20160212
  2. ADVIL [Suspect]
     Active Substance: IBUPROFEN
     Dosage: 400 MG, DAILY, 2 ADVIL 200 MG
     Dates: end: 20160405
  3. ADVIL [Suspect]
     Active Substance: IBUPROFEN
     Dosage: 1200 MG, DAILY, 6 ADVIL 200 MG
     Dates: start: 20160319

REACTIONS (3)
  - Hypertension [Not Recovered/Not Resolved]
  - Peripheral swelling [Not Recovered/Not Resolved]
  - Pain [Not Recovered/Not Resolved]
